FAERS Safety Report 7567686 (Version 2)
Quarter: 2013Q4

REPORT INFORMATION
  Report Type: Spontaneous
  Country: US (occurrence: US)
  Receive Date: 20100831
  Receipt Date: 20131025
  Transmission Date: 20140711
  Serious: Yes (Other)
  Sender: FDA-Public Use
  Company Number: US-ELI_LILLY_AND_COMPANY-US201008007177

PATIENT
  Sex: Female

DRUGS (9)
  1. HUMALOG 25% LISPRO, 75% NPL [Suspect]
     Indication: TYPE 1 DIABETES MELLITUS
     Dosage: 42 U, EACH EVENING
     Route: 065
  2. HUMALOG 25% LISPRO, 75% NPL [Suspect]
     Dosage: 28 U, EACH MORNING
     Route: 065
  3. HUMALOG 25% LISPRO, 75% NPL [Suspect]
     Indication: TYPE 2 DIABETES MELLITUS
     Dosage: 42 U, EACH MORNING
     Route: 065
     Dates: start: 2001
  4. HUMALOG 25% LISPRO, 75% NPL [Suspect]
     Dosage: 50 U, EACH EVENING
     Route: 065
     Dates: start: 2001
  5. METFORMIN [Concomitant]
  6. SIMVASTATIN [Concomitant]
  7. HYDRALAZINE [Concomitant]
  8. METOPROLOL [Concomitant]
  9. LOSARTAN [Concomitant]

REACTIONS (3)
  - Blindness [Unknown]
  - Road traffic accident [Recovered/Resolved]
  - Tooth loss [Unknown]
